FAERS Safety Report 11529847 (Version 1)
Quarter: 2015Q3

REPORT INFORMATION
  Report Type: Spontaneous
  Country: JP (occurrence: JP)
  Receive Date: 20150921
  Receipt Date: 20150921
  Transmission Date: 20151125
  Serious: Yes (Hospitalization, Other)
  Sender: FDA-Public Use
  Company Number: JP-GSKJP-JP2015JPN126905AA

PATIENT
  Age: 68 Year
  Sex: Male
  Weight: 68 kg

DRUGS (13)
  1. CEREKINON [Concomitant]
     Active Substance: TRIMEBUTINE
     Dosage: 100 MG, TID
     Dates: start: 20150820
  2. MAGLAX [Concomitant]
     Active Substance: MAGNESIUM OXIDE
     Dosage: 330 MG, TID
     Dates: start: 20150831
  3. NEXIUM [Concomitant]
     Active Substance: ESOMEPRAZOLE MAGNESIUM
     Dosage: 20 MG, QD
     Dates: start: 20150703
  4. NEOMALLERMIN-TR [Concomitant]
     Active Substance: DEXCHLORPHENIRAMINE MALEATE
     Indication: PREMEDICATION
     Dosage: 6 MG, QD
     Dates: start: 20150902, end: 20150902
  5. VALACICLOVIR HYDROCHLORIDE [Concomitant]
     Active Substance: VALACYCLOVIR HYDROCHLORIDE
     Indication: ANTIVIRAL PROPHYLAXIS
     Dosage: 500 MG, QOD
     Dates: start: 20150728
  6. FEBURIC [Concomitant]
     Active Substance: FEBUXOSTAT
     Dosage: 20 MG, BID
     Dates: start: 20150903
  7. PREDONINE [Concomitant]
     Active Substance: PREDNISOLONE\PREDNISOLONE ACETATE\PREDNISOLONE SODIUM SUCCINATE
     Indication: PREMEDICATION
     Dosage: 100 MG, UNK
     Dates: start: 20150902, end: 20150902
  8. GASCON [Concomitant]
     Active Substance: DIMETHICONE
     Dosage: 40 MG, TID
     Dates: start: 20150821
  9. CONSTAN [Concomitant]
     Active Substance: ALPRAZOLAM
     Dosage: 0.4 MG, QD
     Dates: start: 20150715
  10. ARZERRA [Suspect]
     Active Substance: OFATUMUMAB
     Indication: CHRONIC LYMPHOCYTIC LEUKAEMIA
     Dosage: 300 MG, 1D
     Route: 041
     Dates: start: 20150902, end: 20150902
  11. FEBURIC [Concomitant]
     Active Substance: FEBUXOSTAT
     Indication: PROPHYLAXIS
     Dosage: 20 MG, QD
     Dates: start: 20150901, end: 20150902
  12. CHINESE MEDICINE [Concomitant]
     Active Substance: UNSPECIFIED INGREDIENT
     Dosage: 2.5 G, TID
     Dates: start: 20150821
  13. BAKTAR [Concomitant]
     Active Substance: SULFAMETHOXAZOLE\TRIMETHOPRIM
     Indication: ANTIFUNGAL PROPHYLAXIS
     Dosage: 1 DF, QOD
     Dates: start: 20150720

REACTIONS (4)
  - Abdominal pain [Recovered/Resolved]
  - Tumour lysis syndrome [Recovered/Resolved]
  - Chest pain [Recovered/Resolved]
  - Pneumonia [Unknown]

NARRATIVE: CASE EVENT DATE: 20150903
